FAERS Safety Report 5359004-7 (Version None)
Quarter: 2007Q2

REPORT INFORMATION
  Report Type: 
  Country: None (occurrence: None)
  Receive Date: 20070615
  Receipt Date: 20070607
  Transmission Date: 20071010
  Serious: Yes (Death)
  Sender: FDA-Public Use
  Company Number: US-GENENTECH-242575

PATIENT
  Sex: Male
  Weight: 70 kg

DRUGS (1)
  1. BEVACIZUMAB [Suspect]
     Indication: NON-SMALL CELL LUNG CANCER
     Dosage: 1044 MG, Q3W
     Route: 042
     Dates: start: 20070605, end: 20070605

REACTIONS (1)
  - DEATH [None]
